FAERS Safety Report 9904534 (Version 2)
Quarter: 2014Q1

REPORT INFORMATION
  Report Type: Report from Study
  Country: CA (occurrence: CA)
  Receive Date: 20140218
  Receipt Date: 20140227
  Transmission Date: 20141002
  Serious: Yes (Hospitalization)
  Sender: FDA-Public Use
  Company Number: CA-JNJFOC-20140208899

PATIENT
  Age: 52 Year
  Sex: Male
  Weight: 60.9 kg

DRUGS (5)
  1. REMICADE [Suspect]
     Indication: CROHN^S DISEASE
     Route: 042
     Dates: start: 20120507
  2. PROSCAR [Concomitant]
     Indication: ALOPECIA
     Route: 065
  3. TWYNSTA [Concomitant]
     Route: 065
  4. IMODIUM [Concomitant]
     Dosage: AS NEEDED.
     Route: 065
  5. TECTA [Concomitant]
     Route: 065

REACTIONS (2)
  - Duodenal ulcer [Recovered/Resolved]
  - Infection [Recovering/Resolving]
